FAERS Safety Report 9450967 (Version 1)
Quarter: 2013Q3

REPORT INFORMATION
  Report Type: Report from Study
  Country: US (occurrence: US)
  Receive Date: 20130809
  Receipt Date: 20130809
  Transmission Date: 20140515
  Serious: Yes (Hospitalization)
  Sender: FDA-Public Use
  Company Number: US-B.I. PHARMACEUTICALS,INC./RIDGEFIELD-2013-BI-24195GD

PATIENT
  Sex: 0

DRUGS (2)
  1. PRADAXA [Suspect]
     Dosage: 300 MG
     Route: 048
  2. MULTAQ [Suspect]

REACTIONS (2)
  - Epistaxis [Unknown]
  - Drug interaction [Unknown]
